FAERS Safety Report 10237454 (Version 2)
Quarter: 2014Q3

REPORT INFORMATION
  Report Type: Spontaneous
  Country: JP (occurrence: JP)
  Receive Date: 20140615
  Receipt Date: 20140728
  Transmission Date: 20150326
  Serious: Yes (Hospitalization, Disabling)
  Sender: FDA-Public Use
  Company Number: PHHY2014JP073243

PATIENT
  Age: 67 Year
  Sex: Female
  Weight: 69 kg

DRUGS (4)
  1. NIFEDIPINE. [Concomitant]
     Active Substance: NIFEDIPINE
     Indication: HYPERTENSION
     Dosage: 80 MG, UNK
     Route: 048
  2. TRANDOLAPRIL. [Concomitant]
     Active Substance: TRANDOLAPRIL
     Indication: HYPERTENSION
     Dosage: 1 MG, UNK
     Route: 048
  3. AFINITOR [Suspect]
     Active Substance: EVEROLIMUS
     Indication: RENAL CANCER
     Dosage: 10 MG, DAILY
     Route: 048
     Dates: start: 20140602, end: 20140609
  4. DOXAZOSIN MESILATE [Concomitant]
     Active Substance: DOXAZOSIN MESYLATE
     Indication: HYPERTENSION
     Dosage: 4 MG, UNK
     Route: 048

REACTIONS (4)
  - Mobility decreased [Unknown]
  - Brain stem infarction [Recovered/Resolved with Sequelae]
  - Paresis [Unknown]
  - Hypoaesthesia [Unknown]

NARRATIVE: CASE EVENT DATE: 20140608
